FAERS Safety Report 4767649-8 (Version None)
Quarter: 2005Q3

REPORT INFORMATION
  Report Type: 
  Country: None (occurrence: None)
  Receive Date: 20050912
  Receipt Date: 20050830
  Transmission Date: 20060218
  Serious: Yes (Hospitalization)
  Sender: FDA-Public Use
  Company Number: 1343-13568

PATIENT
  Age: 1 Day
  Sex: Male
  Weight: 2.9 kg

DRUGS (9)
  1. VIRACEPT [Suspect]
     Indication: HIV INFECTION
     Dosage: PLACENTAL
     Route: 064
     Dates: start: 20000601, end: 20000725
  2. INVIRASE [Suspect]
     Indication: HIV INFECTION
     Dosage: PLACENTAL
     Route: 064
     Dates: start: 20000601, end: 20000725
  3. VIRAMUNE [Suspect]
     Indication: HIV INFECTION
     Dosage: SEE IMAGE
     Dates: start: 20000601, end: 20000725
  4. VIRAMUNE [Suspect]
     Indication: INFECTION PROPHYLAXIS
     Dosage: SEE IMAGE
     Dates: start: 20000601, end: 20000725
  5. VIRAMUNE [Suspect]
     Indication: HIV INFECTION
     Dosage: SEE IMAGE
     Dates: start: 20000727, end: 20000730
  6. VIRAMUNE [Suspect]
     Indication: INFECTION PROPHYLAXIS
     Dosage: SEE IMAGE
     Dates: start: 20000727, end: 20000730
  7. IRON (IRON) [Concomitant]
  8. ALUMINUM HYDROXIDE AND MAGNESIUM TRISILICATE [Concomitant]
  9. SPASFON (PHLOROGLUCINOL, TRIMETHYLPHLOROGLUCINOL) [Concomitant]

REACTIONS (7)
  - ANAEMIA NEONATAL [None]
  - BLOOD CREATININE INCREASED [None]
  - BLOOD PYRUVIC ACID DECREASED [None]
  - DRUG EXPOSURE DURING PREGNANCY [None]
  - HYPERTRIGLYCERIDAEMIA [None]
  - NEUTROPENIA NEONATAL [None]
  - THROMBOCYTHAEMIA [None]
